FAERS Safety Report 14666671 (Version 1)
Quarter: 2018Q1

REPORT INFORMATION
  Report Type: Spontaneous
  Country: FR (occurrence: FR)
  Receive Date: 20180322
  Receipt Date: 20180322
  Transmission Date: 20180509
  Serious: Yes (Other)
  Sender: FDA-Public Use
  Company Number: FR-MERCK KGAA-2044256

PATIENT
  Age: 53 Year
  Sex: Female

DRUGS (1)
  1. NOVOTHYROX [Suspect]
     Active Substance: LEVOTHYROXINE SODIUM
     Indication: HYPOTHYROIDISM
     Dates: end: 201708

REACTIONS (22)
  - Loss of libido [None]
  - Feeling abnormal [None]
  - Chest discomfort [Recovered/Resolved]
  - Fatigue [None]
  - Abdominal distension [None]
  - Anger [None]
  - Blood glucose increased [None]
  - Personal relationship issue [None]
  - Vertigo [None]
  - Arthralgia [None]
  - Dizziness [None]
  - Depression [None]
  - Blood thyroid stimulating hormone increased [None]
  - Syncope [None]
  - Abdominal pain upper [None]
  - Blood uric acid increased [None]
  - Loss of personal independence in daily activities [None]
  - Headache [Recovered/Resolved]
  - Respiratory disorder [None]
  - Somnolence [None]
  - Social avoidant behaviour [None]
  - Diarrhoea [Recovered/Resolved]

NARRATIVE: CASE EVENT DATE: 201706
